FAERS Safety Report 6654669-1 (Version None)
Quarter: 2010Q1

REPORT INFORMATION
  Report Type: 
  Country: None (occurrence: None)
  Receive Date: 20100326
  Receipt Date: 20100315
  Transmission Date: 20100710
  Serious: Yes (Life-Threatening)
  Sender: FDA-Public Use
  Company Number: GB-GENENTECH-298657

PATIENT
  Sex: Female
  Weight: 65 kg

DRUGS (6)
  1. RITUXIMAB [Suspect]
     Indication: RHEUMATOID ARTHRITIS
     Dosage: UNK MG, UNK
     Route: 042
     Dates: start: 20060725
  2. RITUXIMAB [Suspect]
     Dosage: 1000 MG, UNK
     Route: 042
     Dates: start: 20070128
  3. METHOTREXATE [Suspect]
     Indication: RHEUMATOID ARTHRITIS
     Dosage: 20 MG, 1/WEEK
     Route: 065
     Dates: start: 20060913
  4. ACETAMINOPHEN AND CODEINE PHOSPHATE [Concomitant]
     Indication: DRUG USE FOR UNKNOWN INDICATION
     Dosage: UNK MG, QD
     Dates: start: 20060115
  5. NARAMIG [Concomitant]
     Indication: DRUG USE FOR UNKNOWN INDICATION
     Dosage: DOSE: 2-5 PRN.
     Dates: start: 20000101
  6. FOLIC ACID [Concomitant]
     Indication: DRUG USE FOR UNKNOWN INDICATION
     Dosage: 5 MG, 1/WEEK
     Dates: start: 20060916

REACTIONS (1)
  - PAGET'S DISEASE OF THE BREAST [None]
